FAERS Safety Report 17640840 (Version 2)
Quarter: 2020Q2

REPORT INFORMATION
  Report Type: Report from Study
  Country: US (occurrence: US)
  Receive Date: 20200407
  Receipt Date: 20200520
  Transmission Date: 20200713
  Serious: No
  Sender: FDA-Public Use
  Company Number: NVSC2020US091113

PATIENT
  Sex: Female

DRUGS (1)
  1. COSENTYX [Suspect]
     Active Substance: SECUKINUMAB
     Indication: PRODUCT USED FOR UNKNOWN INDICATION
     Dosage: UNK UNK, UNKNOWN
     Route: 065

REACTIONS (5)
  - Psoriasis [Not Recovered/Not Resolved]
  - Influenza [Recovered/Resolved]
  - Skin plaque [Not Recovered/Not Resolved]
  - Exposure to communicable disease [Unknown]
  - Inappropriate schedule of product administration [Not Recovered/Not Resolved]
